FAERS Safety Report 11310124 (Version 2)
Quarter: 2015Q3

REPORT INFORMATION
  Report Type: Spontaneous
  Country: US (occurrence: US)
  Receive Date: 20150724
  Receipt Date: 20150804
  Transmission Date: 20151125
  Serious: Yes (Other)
  Sender: FDA-Public Use
  Company Number: US-ELI_LILLY_AND_COMPANY-US201506009715

PATIENT
  Age: 80 Year
  Sex: Female

DRUGS (2)
  1. PROZAC [Concomitant]
     Active Substance: FLUOXETINE HYDROCHLORIDE
     Indication: PRODUCT USED FOR UNKNOWN INDICATION
  2. ALIMTA [Suspect]
     Active Substance: PEMETREXED DISODIUM
     Indication: LUNG CANCER METASTATIC
     Dosage: UNK, UNKNOWN
     Route: 065
     Dates: start: 2011

REACTIONS (5)
  - Dehydration [Unknown]
  - Systemic lupus erythematosus [Unknown]
  - Quality of life decreased [Unknown]
  - Fatigue [Unknown]
  - Malaise [Unknown]
